FAERS Safety Report 20911556 (Version 1)
Quarter: 2022Q2

REPORT INFORMATION
  Report Type: Report from Study
  Country: CA (occurrence: None)
  Receive Date: 20220603
  Receipt Date: 20220603
  Transmission Date: 20220721
  Serious: Yes (Other)
  Sender: FDA-Public Use
  Company Number: 2021A849365

PATIENT
  Sex: Male

DRUGS (4)
  1. FASENRA [Suspect]
     Active Substance: BENRALIZUMAB
     Indication: Asthma
     Dosage: 30.0MG UNKNOWN
     Route: 058
     Dates: start: 20210811
  2. PENTOPRIL [Concomitant]
     Active Substance: PENTOPRIL
  3. BUDESONIDE [Concomitant]
     Active Substance: BUDESONIDE
  4. ALVESCO [Concomitant]
     Active Substance: CICLESONIDE

REACTIONS (3)
  - Fatigue [Not Recovered/Not Resolved]
  - Obstructive sleep apnoea syndrome [Unknown]
  - Hunger [Not Recovered/Not Resolved]
